FAERS Safety Report 15334879 (Version 2)
Quarter: 2018Q3

REPORT INFORMATION
  Report Type: Spontaneous
  Country: US (occurrence: US)
  Receive Date: 20180830
  Receipt Date: 20180925
  Transmission Date: 20181010
  Serious: No
  Sender: FDA-Public Use
  Company Number: US-ASTRAZENECA-2018SF00264

PATIENT
  Age: 24747 Day
  Sex: Male
  Weight: 124.7 kg

DRUGS (1)
  1. BYDUREON [Suspect]
     Active Substance: EXENATIDE
     Indication: TYPE 2 DIABETES MELLITUS
     Route: 058
     Dates: start: 20180719

REACTIONS (3)
  - Device malfunction [Unknown]
  - Underdose [Unknown]
  - Anxiety [Unknown]

NARRATIVE: CASE EVENT DATE: 20180719
